FAERS Safety Report 9617490 (Version 3)
Quarter: 2013Q4

REPORT INFORMATION
  Report Type: Spontaneous
  Country: US (occurrence: US)
  Receive Date: 20131011
  Receipt Date: 20131219
  Transmission Date: 20140711
  Serious: Yes (Hospitalization)
  Sender: FDA-Public Use
  Company Number: US-GLAXOSMITHKLINE-A1043703A

PATIENT
  Age: 78 Year
  Sex: Female

DRUGS (13)
  1. ADVAIR [Suspect]
     Indication: CHRONIC OBSTRUCTIVE PULMONARY DISEASE
     Dosage: 2PUFF TWICE PER DAY
     Route: 055
     Dates: start: 2009
  2. SEREVENT [Suspect]
     Route: 055
     Dates: start: 201305, end: 201308
  3. VENTOLIN HFA [Suspect]
     Indication: RESPIRATORY DISORDER
     Dosage: 90MCG UNKNOWN
     Route: 065
     Dates: start: 20111027
  4. PREDNISONE [Suspect]
     Route: 065
  5. FLECAINIDE [Concomitant]
  6. ALBUTEROL [Concomitant]
  7. METOPROLOL [Concomitant]
  8. LOVASTATIN [Concomitant]
  9. SPIRIVA [Concomitant]
  10. FUROSEMIDE [Concomitant]
  11. CEFDINIR [Concomitant]
  12. VALACYCLOVIR [Concomitant]
  13. OXYGEN [Concomitant]

REACTIONS (10)
  - Haemorrhage [Unknown]
  - Tooth loss [Unknown]
  - Drug ineffective [Unknown]
  - Tooth fracture [Unknown]
  - Dyspnoea [Unknown]
  - Pneumonia [Unknown]
  - Constipation [Unknown]
  - Herpes zoster [Unknown]
  - Haemorrhage urinary tract [Unknown]
  - Myocardial infarction [Unknown]
